FAERS Safety Report 7572234-9 (Version None)
Quarter: 2011Q2

REPORT INFORMATION
  Report Type: 
  Country: None (occurrence: None)
  Receive Date: 20110624
  Receipt Date: 20110613
  Transmission Date: 20111010
  Serious: Yes (Hospitalization)
  Sender: FDA-Public Use
  Company Number: PHHY2011US52303

PATIENT
  Age: 86 Year
  Sex: Male

DRUGS (1)
  1. ZOMETA [Suspect]

REACTIONS (1)
  - EPISTAXIS [None]
